FAERS Safety Report 8848592 (Version 2)
Quarter: 2012Q4

REPORT INFORMATION
  Report Type: 
  Country: FR (occurrence: FR)
  Receive Date: 20121018
  Receipt Date: 20121024
  Transmission Date: 20130627
  Serious: Yes (Other)
  Sender: FDA-Public Use
  Company Number: FR-ROCHE-1142262

PATIENT
  Age: 55 Year
  Sex: Male
  Weight: 60 kg

DRUGS (2)
  1. PEGASYS [Suspect]
     Indication: HEPATITIS C
     Route: 058
     Dates: start: 201203
  2. RIBAVIRIN [Concomitant]
     Indication: HEPATITIS
     Route: 065
     Dates: start: 2012

REACTIONS (1)
  - Epilepsy [Recovered/Resolved]
